FAERS Safety Report 15965956 (Version 1)
Quarter: 2019Q1

REPORT INFORMATION
  Report Type: Spontaneous
  Country: US (occurrence: US)
  Receive Date: 20190215
  Receipt Date: 20190215
  Transmission Date: 20190418
  Serious: No
  Sender: FDA-Public Use
  Company Number: US-PFIZER INC-2019060152

PATIENT
  Age: 64 Year
  Sex: Male
  Weight: 68 kg

DRUGS (2)
  1. GEMZAR [Suspect]
     Active Substance: GEMCITABINE HYDROCHLORIDE
     Indication: HEAD AND NECK CANCER
     Dosage: 1930 MG, CYCLIC: EVERY 21 DAYS
     Route: 042
     Dates: start: 20190111, end: 20190201
  2. VINORELBINE TARTRATE. [Suspect]
     Active Substance: VINORELBINE TARTRATE
     Indication: HEAD AND NECK CANCER
     Dosage: 48 MG, CYCLIC: EVERY 21 DAYS
     Route: 042
     Dates: start: 20190111, end: 20190201

REACTIONS (1)
  - Neoplasm progression [Unknown]
